FAERS Safety Report 8800672 (Version 4)
Quarter: 2013Q3

REPORT INFORMATION
  Report Type: Report from Study
  Country: BR (occurrence: BR)
  Receive Date: 20120921
  Receipt Date: 20130815
  Transmission Date: 20140515
  Serious: Yes (Life-Threatening, Other)
  Sender: FDA-Public Use
  Company Number: BR-ROCHE-1129122

PATIENT
  Sex: Male
  Weight: 77 kg

DRUGS (5)
  1. PEGASYS [Suspect]
     Indication: HEPATITIS C
     Route: 042
     Dates: start: 201109, end: 201202
  2. PEGASYS [Suspect]
     Route: 065
     Dates: start: 20120914
  3. RIBAVIRIN [Suspect]
     Indication: HEPATITIS C
     Route: 065
     Dates: start: 201109, end: 201202
  4. RIBAVIRIN [Suspect]
     Route: 065
     Dates: start: 20120914
  5. PEGINTRON [Suspect]
     Indication: HEPATITIS C
     Route: 065
     Dates: start: 20120914

REACTIONS (13)
  - Viral load increased [Unknown]
  - Porphyria [Not Recovered/Not Resolved]
  - Delirium [Unknown]
  - Blister [Not Recovered/Not Resolved]
  - Dizziness [Recovered/Resolved]
  - Pain [Recovered/Resolved]
  - Influenza like illness [Not Recovered/Not Resolved]
  - Nausea [Recovered/Resolved]
  - Insomnia [Recovering/Resolving]
  - Decreased appetite [Recovered/Resolved]
  - Ageusia [Recovered/Resolved]
  - Viral load increased [Not Recovered/Not Resolved]
  - Weight decreased [Recovered/Resolved]
